FAERS Safety Report 5217521-4 (Version None)
Quarter: 2007Q1

REPORT INFORMATION
  Report Type: 
  Country: None (occurrence: None)
  Receive Date: 20070119
  Receipt Date: 20070111
  Transmission Date: 20070707
  Serious: Yes (Life-Threatening, Hospitalization)
  Sender: FDA-Public Use
  Company Number: HQWYE422515JAN07

PATIENT
  Age: 71 Year
  Sex: Male

DRUGS (7)
  1. MYLOTARG [Suspect]
     Indication: ACUTE MYELOID LEUKAEMIA RECURRENT
     Dosage: 6 MG/M^2 1X PER DAY INTRAVENOUS DRIP
     Route: 041
     Dates: start: 20061013, end: 20061013
  2. ZANTAC [Concomitant]
  3. MUCOSTA (REBAMIPIDE) [Concomitant]
  4. DIFLUCAN [Concomitant]
  5. POLYMYXIN B SULFATE (POLYMYXIN B SULFATE) [Concomitant]
  6. CLARITHROMYCIN [Concomitant]
  7. SULFAMETHOXAZOLE + TRIMETHOPRIM [Concomitant]

REACTIONS (8)
  - ABDOMINAL PAIN UPPER [None]
  - C-REACTIVE PROTEIN INCREASED [None]
  - DISSEMINATED INTRAVASCULAR COAGULATION [None]
  - FEBRILE NEUTROPENIA [None]
  - HAEMATOCRIT DECREASED [None]
  - HAEMOGLOBIN DECREASED [None]
  - PEPTIC ULCER [None]
  - WHITE BLOOD CELL COUNT DECREASED [None]
